FAERS Safety Report 19681289 (Version 1)
Quarter: 2021Q3

REPORT INFORMATION
  Report Type: Spontaneous
  Country: US (occurrence: US)
  Receive Date: 20210810
  Receipt Date: 20210810
  Transmission Date: 20211014
  Serious: No
  Sender: FDA-Public Use
  Company Number: US-IGSA-BIG0010610

PATIENT
  Sex: Female

DRUGS (10)
  1. ATORVASTATIN [Concomitant]
     Active Substance: ATORVASTATIN
  2. CYMBALTA [Concomitant]
     Active Substance: DULOXETINE HYDROCHLORIDE
  3. TIZANIDINE HCL [Concomitant]
     Active Substance: TIZANIDINE HYDROCHLORIDE
  4. GAMUNEX?C [Suspect]
     Active Substance: HUMAN IMMUNOGLOBULIN G
     Dosage: 42 GRAM
     Route: 042
  5. TRAZODONE HYDROCHLORIDE. [Concomitant]
     Active Substance: TRAZODONE HYDROCHLORIDE
  6. GALCANEZUMAB [Concomitant]
     Active Substance: GALCANEZUMAB
  7. TEGRETOL [Concomitant]
     Active Substance: CARBAMAZEPINE
  8. GAMUNEX?C [Suspect]
     Active Substance: HUMAN IMMUNOGLOBULIN G
     Indication: POLYNEUROPATHY
     Dosage: 42 GRAM, DAILY FOR 2 DAYS
     Route: 042
     Dates: start: 202006, end: 202006
  9. BOTOX [Concomitant]
     Active Substance: ONABOTULINUMTOXINA
  10. BELBUCA [Concomitant]
     Active Substance: BUPRENORPHINE HYDROCHLORIDE

REACTIONS (4)
  - Pain [Recovered/Resolved]
  - Influenza like illness [Recovered/Resolved]
  - Infusion site pain [Not Recovered/Not Resolved]
  - Fatigue [Recovered/Resolved]
